FAERS Safety Report 10172051 (Version 1)
Quarter: 2014Q2

REPORT INFORMATION
  Report Type: Spontaneous
  Country: US (occurrence: US)
  Receive Date: 20140515
  Receipt Date: 20140515
  Transmission Date: 20141212
  Serious: Yes (Hospitalization, Other)
  Sender: FDA-Public Use
  Company Number: US-009507513-1405USA006613

PATIENT
  Age: 32 Year
  Sex: Female
  Weight: 77.98 kg

DRUGS (1)
  1. NUVARING [Suspect]
     Indication: CONTRACEPTION
     Dosage: INSERT 3 WEEKS/ 1 WEEK OUT
     Route: 067
     Dates: end: 20140503

REACTIONS (1)
  - Pulmonary embolism [Unknown]
